FAERS Safety Report 13229367 (Version 1)
Quarter: 2017Q1

REPORT INFORMATION
  Report Type: Report from Study
  Country: US (occurrence: US)
  Receive Date: 20170214
  Receipt Date: 20170214
  Transmission Date: 20170428
  Serious: Yes (Hospitalization)
  Sender: FDA-Public Use
  Company Number: US-ROCHE-1892178

PATIENT
  Age: 46 Year
  Sex: Male
  Weight: 99.88 kg

DRUGS (2)
  1. XOLAIR [Suspect]
     Active Substance: OMALIZUMAB
     Indication: IDIOPATHIC URTICARIA
     Dosage: ONGOING: NO
     Route: 030
     Dates: start: 20170111, end: 20170111
  2. XOLAIR [Suspect]
     Active Substance: OMALIZUMAB
     Route: 058

REACTIONS (4)
  - Abdominal pain [Recovered/Resolved with Sequelae]
  - Chronic gastritis [Recovered/Resolved with Sequelae]
  - Abdominal discomfort [Recovered/Resolved with Sequelae]
  - Off label use [Unknown]

NARRATIVE: CASE EVENT DATE: 20170111
